FAERS Safety Report 4972337-9 (Version None)
Quarter: 2006Q2

REPORT INFORMATION
  Report Type: 
  Country: None (occurrence: None)
  Receive Date: 20060413
  Receipt Date: 20060403
  Transmission Date: 20061013
  Serious: Yes (Life-Threatening)
  Sender: FDA-Public Use
  Company Number: CH-ABBOTT-06P-151-0329755-00

PATIENT
  Age: 71 Year
  Sex: Female

DRUGS (14)
  1. DEPAKENE [Suspect]
     Indication: EPILEPSY
     Route: 065
     Dates: start: 20060212, end: 20060219
  2. DEPAKENE [Suspect]
  3. DEPAKINE INJECTION [Suspect]
     Indication: EPILEPSY
     Route: 042
     Dates: start: 20060220
  4. METRONIDAZOLE [Suspect]
     Indication: DIVERTICULAR PERFORATION
     Route: 041
     Dates: start: 20060211, end: 20060225
  5. ESOMEPRAZOLE [Suspect]
     Indication: GASTRIC ULCER
     Route: 065
     Dates: start: 20060211
  6. ESOMEPRAZOLE [Suspect]
     Route: 042
     Dates: start: 20060220, end: 20060225
  7. FLUCONAZOLE [Suspect]
     Indication: DIVERTICULAR PERFORATION
     Route: 042
     Dates: start: 20060213, end: 20060218
  8. CEFTRIAXONE [Concomitant]
     Indication: DIVERTICULAR PERFORATION
     Route: 041
     Dates: start: 20060211, end: 20060219
  9. CEFTRIAXONE [Concomitant]
     Route: 041
     Dates: start: 20060220, end: 20060225
  10. HYDROCORTISONE [Concomitant]
     Indication: BRAIN NEOPLASM MALIGNANT
     Route: 041
     Dates: start: 20060214, end: 20060219
  11. HYDROCORTISONE [Concomitant]
     Route: 041
     Dates: start: 20060220, end: 20060225
  12. TRAMADOL HCL [Concomitant]
     Indication: ABDOMINAL PAIN
     Route: 042
     Dates: start: 20060214, end: 20060216
  13. PERFALGAN [Concomitant]
     Indication: ABDOMINAL PAIN
     Route: 042
     Dates: start: 20060214, end: 20060219
  14. DEXAMETHASONE [Concomitant]
     Indication: BRAIN NEOPLASM MALIGNANT
     Route: 048
     Dates: start: 20060212, end: 20060213

REACTIONS (7)
  - ANTICONVULSANT DRUG LEVEL BELOW THERAPEUTIC [None]
  - CHOLESTASIS [None]
  - DRUG INEFFECTIVE [None]
  - HAEMOLYTIC ANAEMIA [None]
  - HYPERNATRAEMIA [None]
  - HYPOKALAEMIA [None]
  - STATUS EPILEPTICUS [None]
